FAERS Safety Report 5684483-5 (Version None)
Quarter: 2008Q1

REPORT INFORMATION
  Report Type: 
  Country: None (occurrence: None)
  Receive Date: 20080328
  Receipt Date: 20080319
  Transmission Date: 20080703
  Serious: Yes (Life-Threatening)
  Sender: FDA-Public Use
  Company Number: MX-ALLERGAN-0803355US

PATIENT
  Sex: Male
  Weight: 105 kg

DRUGS (1)
  1. EPINASTINE HCL 20 MG TAB [Suspect]
     Indication: RHINITIS
     Dosage: 20 MG, UNIQUE DOSE
     Route: 048
     Dates: start: 20080301, end: 20080301

REACTIONS (3)
  - BRONCHOSPASM [None]
  - URTICARIA [None]
  - VOMITING [None]
